FAERS Safety Report 4639804-9 (Version None)
Quarter: 2005Q2

REPORT INFORMATION
  Report Type: 
  Country: None (occurrence: None)
  Receive Date: 20050415
  Receipt Date: 20050330
  Transmission Date: 20051028
  Serious: Yes (Hospitalization, Disabling)
  Sender: FDA-Public Use
  Company Number: 2004-BP-01775NB

PATIENT
  Age: 29 Year
  Sex: Female

DRUGS (3)
  1. MICARDIS [Suspect]
     Indication: HYPERTENSION
     Dosage: 20 MG (NR)
     Route: 048
     Dates: start: 20040123, end: 20040201
  2. NORVASC [Concomitant]
  3. MARZULENE S (MARZULENE S) (GR) [Concomitant]

REACTIONS (3)
  - CONDITION AGGRAVATED [None]
  - RENAL FAILURE CHRONIC [None]
  - THROMBOTIC THROMBOCYTOPENIC PURPURA [None]
